FAERS Safety Report 7359285-4 (Version None)
Quarter: 2011Q1

REPORT INFORMATION
  Report Type: 
  Country: None (occurrence: None)
  Receive Date: 20110317
  Receipt Date: 20091009
  Transmission Date: 20110831
  Serious: No
  Sender: FDA-Public Use
  Company Number: US-PFIZER INC-2009259098

PATIENT
  Sex: Male
  Weight: 88.435 kg

DRUGS (12)
  1. LOTREL [Concomitant]
     Indication: HYPERTENSION
     Dosage: UNK
     Route: 048
     Dates: end: 20090101
  2. AMLODIPINE BESYLATE [Suspect]
     Indication: HYPERTENSION
     Dosage: 5 MG, 1X/DAY
     Route: 048
     Dates: start: 20090101, end: 20090817
  3. SITAGLIPTIN [Concomitant]
     Indication: DIABETES MELLITUS
     Dosage: FREQUENCY: 2X/DAY,
     Route: 048
  4. POTASSIUM CITRATE [Concomitant]
     Dosage: FREQUENCY: 2X/DAY,
     Route: 048
  5. PANTOPRAZOLE [Concomitant]
     Indication: GASTROOESOPHAGEAL REFLUX DISEASE
     Dosage: 40 MG, 1X/DAY
     Route: 048
     Dates: end: 20090817
  6. TAMSULOSIN HYDROCHLORIDE [Concomitant]
     Indication: MICTURITION DISORDER
     Dosage: FREQUENCY: AS NEEDED,
     Route: 048
  7. ACETYLSALICYLIC ACID [Concomitant]
     Dosage: 81 MG, 1X/DAY
     Route: 048
  8. METOPROLOL SUCCINATE [Concomitant]
     Indication: HYPERTENSION
     Dosage: 100 MG, 1X/DAY
     Route: 048
     Dates: end: 20090817
  9. CENTRUM SILVER [Concomitant]
     Dosage: UNK
     Route: 048
  10. BENAZEPRIL HYDROCHLORIDE [Concomitant]
     Indication: HYPERTENSION
     Dosage: 40 MG, 1X/DAY
     Route: 048
     Dates: end: 20090817
  11. SIMVASTATIN [Concomitant]
     Indication: BLOOD CHOLESTEROL INCREASED
     Dosage: 40 MG, 1X/DAY
     Route: 048
     Dates: end: 20090817
  12. SIMETHICONE [Concomitant]
     Indication: FLATULENCE

REACTIONS (5)
  - SENSITIVITY OF TEETH [None]
  - GINGIVAL PAIN [None]
  - PRURITUS GENERALISED [None]
  - TINNITUS [None]
  - DYSGEUSIA [None]
